FAERS Safety Report 5134223-3 (Version None)
Quarter: 2006Q4

REPORT INFORMATION
  Report Type: 
  Country: None (occurrence: None)
  Receive Date: 20061018
  Receipt Date: 20061016
  Transmission Date: 20070319
  Serious: Yes (Hospitalization, Other)
  Sender: FDA-Public Use
  Company Number: HQWYE491724JAN06

PATIENT
  Age: 58 Year
  Sex: Male

DRUGS (12)
  1. RAPAMUNE [Suspect]
     Indication: PROPHYLAXIS AGAINST TRANSPLANT REJECTION
     Dosage: 2 G 1X PER 1 DAY, ORAL
     Route: 048
     Dates: start: 20050620
  2. CALCIPARINE [Suspect]
     Dosage: 2.2 MG DOSE STRENGTH
     Dates: start: 20051230, end: 20060103
  3. CORTANCYL (PREDNISONE, ) [Suspect]
     Indication: PROPHYLAXIS AGAINST TRANSPLANT REJECTION
     Dosage: SEE IMAGE, ORAL
     Route: 048
     Dates: start: 20050325, end: 20060107
  4. CORTANCYL (PREDNISONE, ) [Suspect]
     Indication: PROPHYLAXIS AGAINST TRANSPLANT REJECTION
     Dosage: SEE IMAGE, ORAL
     Route: 048
     Dates: start: 20060108
  5. MYCOPHENOLATE MOFETIL [Concomitant]
  6. ZENAPAX [Concomitant]
  7. CYCLOSPORINE [Concomitant]
  8. CORTICOSTEROID NOS (CORTICOSTEROID NOS) [Concomitant]
  9. FOSCARNET [Concomitant]
  10. LEDERFOLIN (CALCIUM FOLINATE) [Concomitant]
  11. BACTRIM [Concomitant]
  12. AMLODIPINE BESYLATE [Concomitant]

REACTIONS (2)
  - MOUTH ULCERATION [None]
  - ULCER HAEMORRHAGE [None]
